FAERS Safety Report 4716350-5 (Version None)
Quarter: 2005Q3

REPORT INFORMATION
  Report Type: 
  Country: None (occurrence: None)
  Receive Date: 20050712
  Receipt Date: 20050124
  Transmission Date: 20060218
  Serious: Yes (Other)
  Sender: FDA-Public Use
  Company Number: PHEH2005US01040

PATIENT
  Age: 57 Year
  Sex: Female
  Weight: 54.4 kg

DRUGS (5)
  1. GLEEVEC [Suspect]
     Indication: CHRONIC MYELOID LEUKAEMIA
     Dosage: 400 MG QD ORAL
     Route: 048
     Dates: start: 20040610, end: 20041118
  2. NEXIUM [Concomitant]
  3. PAXIL [Concomitant]
  4. AMBIEN [Concomitant]
  5. ADVIL [Concomitant]

REACTIONS (2)
  - HEPATOTOXICITY [None]
  - LIVER FUNCTION TEST ABNORMAL [None]
